FAERS Safety Report 15930368 (Version 3)
Quarter: 2019Q1

REPORT INFORMATION
  Report Type: Report from Study
  Country: US (occurrence: US)
  Receive Date: 20190207
  Receipt Date: 20190318
  Transmission Date: 20190417
  Serious: Yes (Other)
  Sender: FDA-Public Use
  Company Number: US-PFIZER INC-2019020220

PATIENT
  Age: 72 Year
  Sex: Female

DRUGS (2)
  1. IBRANCE [Suspect]
     Active Substance: PALBOCICLIB
     Dosage: 125 MG, CYCLIC (TAKES MED FOR 21 DAYS ON, 7 OFF)
     Route: 048
     Dates: start: 20190103
  2. IBRANCE [Suspect]
     Active Substance: PALBOCICLIB
     Indication: BREAST CANCER
     Dosage: 125MG, CYCLIC (DAILY FOR 21 DAYS ON, 7 DAYS OFF)
     Route: 048
     Dates: start: 20180103

REACTIONS (19)
  - Blood potassium decreased [Unknown]
  - Pain in extremity [Unknown]
  - Nausea [Not Recovered/Not Resolved]
  - Blood glucose fluctuation [Unknown]
  - Dizziness [Unknown]
  - Haemorrhagic diathesis [Unknown]
  - Bone pain [Unknown]
  - Balance disorder [Unknown]
  - Asthenia [Unknown]
  - White blood cell count decreased [Not Recovered/Not Resolved]
  - Headache [Unknown]
  - Dyspnoea [Not Recovered/Not Resolved]
  - Epistaxis [Unknown]
  - Constipation [Unknown]
  - Pain [Unknown]
  - Alopecia [Not Recovered/Not Resolved]
  - Decreased appetite [Unknown]
  - Musculoskeletal pain [Unknown]
  - Fatigue [Not Recovered/Not Resolved]
